FAERS Safety Report 4557808-1 (Version None)
Quarter: 2005Q1

REPORT INFORMATION
  Report Type: 
  Country: None (occurrence: None)
  Receive Date: 20050118
  Receipt Date: 20050105
  Transmission Date: 20050727
  Serious: Yes (Other)
  Sender: FDA-Public Use
  Company Number: HQWYE395505JAN05

PATIENT
  Age: 36 Year
  Sex: Male

DRUGS (3)
  1. PANTOZOL                                (PANTOPRAZOLE) [Suspect]
     Indication: HIATUS HERNIA
     Dosage: 40 MG 1X PER 1 DAY ORAL
     Route: 048
     Dates: start: 20020901
  2. DICLOFENAC SODIUM [Suspect]
     Indication: LUMBAR RADICULOPATHY
     Dosage: 50 MG 2X PER 1 DAY ORAL
     Route: 048
     Dates: start: 20040801, end: 20041015
  3. OMEPRAZOLE [Suspect]
     Dosage: 40 MG 1X PER 1 DAY ORAL
     Route: 048
     Dates: start: 20040801

REACTIONS (7)
  - ALANINE AMINOTRANSFERASE INCREASED [None]
  - ASPARTATE AMINOTRANSFERASE INCREASED [None]
  - BLOOD ALKALINE PHOSPHATASE INCREASED [None]
  - FATIGUE [None]
  - GAMMA-GLUTAMYLTRANSFERASE INCREASED [None]
  - HEPATIC FUNCTION ABNORMAL [None]
  - TRANSAMINASES INCREASED [None]
